FAERS Safety Report 12366024 (Version 14)
Quarter: 2019Q1

REPORT INFORMATION
  Report Type: Report from Study
  Country: GB (occurrence: GB)
  Receive Date: 20160513
  Receipt Date: 20190205
  Transmission Date: 20190417
  Serious: Yes (Other)
  Sender: FDA-Public Use
  Company Number: GB-ROCHE-1647595

PATIENT
  Sex: Male

DRUGS (6)
  1. ESBRIET [Suspect]
     Active Substance: PIRFENIDONE
     Dosage: 2-3-3 CAPSULES DAILY
     Route: 048
     Dates: start: 201508
  2. ATORVASTATIN [Concomitant]
     Active Substance: ATORVASTATIN
  3. ESBRIET [Suspect]
     Active Substance: PIRFENIDONE
     Dosage: CONTINUES 2-3-3 REGIMEN.
     Route: 048
  4. ESBRIET [Suspect]
     Active Substance: PIRFENIDONE
     Dosage: 2-3-3 CAPSULES DAILY
     Route: 048
     Dates: start: 20151008
  5. RAMIPRIL. [Concomitant]
     Active Substance: RAMIPRIL
  6. ESBRIET [Suspect]
     Active Substance: PIRFENIDONE
     Indication: IDIOPATHIC PULMONARY FIBROSIS
     Dosage: CONTINUES 2-3-3 REGIMEN.
     Route: 048
     Dates: start: 20151008

REACTIONS (17)
  - Dizziness [Recovered/Resolved]
  - Dyspnoea [Unknown]
  - General physical health deterioration [Not Recovered/Not Resolved]
  - Nausea [Recovered/Resolved]
  - Weight decreased [Not Recovered/Not Resolved]
  - Malaise [Unknown]
  - Fatigue [Unknown]
  - Pulmonary mass [Unknown]
  - Nasopharyngitis [Unknown]
  - Panic reaction [Unknown]
  - Abdominal distension [Recovering/Resolving]
  - Eructation [Not Recovered/Not Resolved]
  - Oxygen saturation decreased [Unknown]
  - Cough [Unknown]
  - Pulmonary function test decreased [Unknown]
  - Decreased appetite [Not Recovered/Not Resolved]
  - Rhinorrhoea [Unknown]

NARRATIVE: CASE EVENT DATE: 20151010
